FAERS Safety Report 5483295-5 (Version None)
Quarter: 2007Q4

REPORT INFORMATION
  Report Type: 
  Country: None (occurrence: None)
  Receive Date: 20071012
  Receipt Date: 20071004
  Transmission Date: 20080405
  Serious: Yes (Hospitalization, Other)
  Sender: FDA-Public Use
  Company Number: PHBS2007JP13287

PATIENT
  Age: 80 Year
  Sex: Male

DRUGS (11)
  1. ZOMETA [Suspect]
     Indication: BONE LESION
     Dosage: 4 MG EVERY 4 WEEKS
     Route: 042
     Dates: start: 20070109, end: 20070710
  2. ALKERAN [Concomitant]
     Indication: MULTIPLE MYELOMA
     Dosage: 4 DF/DAY
     Route: 048
     Dates: start: 20070326, end: 20070710
  3. PREDONINE [Concomitant]
     Indication: MULTIPLE MYELOMA
     Dosage: 6 DF/DAY
     Route: 048
     Dates: start: 20070326, end: 20070710
  4. FAMOTIDINE [Concomitant]
     Dosage: UNK, UNK
     Route: 048
     Dates: start: 20070326
  5. LOXONIN [Concomitant]
     Dosage: UNK, UNK
     Route: 048
     Dates: start: 20070326
  6. SELBEX [Concomitant]
     Dosage: UNK, UNK
     Route: 048
     Dates: start: 20070326
  7. TERNELIN [Concomitant]
     Dosage: UNK, UNK
     Route: 048
     Dates: start: 20020326
  8. VITAMEDIN CAPSULE [Concomitant]
     Dosage: UNK, UNK
     Route: 048
  9. FOLIAMIN [Concomitant]
     Dosage: UNK, UNK
     Route: 048
  10. BUP-4 [Concomitant]
     Dosage: UNK, UNK
     Route: 048
  11. ALENDRONATE SODIUM [Concomitant]
     Dosage: UNK, UNK
     Dates: start: 20050720, end: 20070109

REACTIONS (13)
  - ANAEMIA [None]
  - BIOPSY BONE MARROW ABNORMAL [None]
  - BONE DEBRIDEMENT [None]
  - BONE DISORDER [None]
  - CATARACT OPERATION [None]
  - DIARRHOEA [None]
  - FACIAL PALSY [None]
  - LOOSE TOOTH [None]
  - MULTIPLE MYELOMA [None]
  - OSTEOMYELITIS [None]
  - THIRST [None]
  - TOOTH EXTRACTION [None]
  - VOMITING [None]
